FAERS Safety Report 5069029-7 (Version None)
Quarter: 2006Q3

REPORT INFORMATION
  Report Type: 
  Country: None (occurrence: None)
  Receive Date: 20060728
  Receipt Date: 20060718
  Transmission Date: 20061208
  Serious: Yes (Hospitalization, Other)
  Sender: FDA-Public Use
  Company Number: GB200607000493

PATIENT
  Age: 55 Year
  Sex: Male

DRUGS (2)
  1. ZYPREXA [Suspect]
     Indication: SCHIZOPHRENIA
     Dosage: 10 MG,
     Dates: start: 20060601
  2. DEPIXOL (FLUPENTIXOL DECANOATE) [Concomitant]

REACTIONS (9)
  - CARDIAC ARREST [None]
  - CONVULSION [None]
  - DEPRESSION [None]
  - DRUG DOSE OMISSION [None]
  - FALL [None]
  - LOSS OF CONSCIOUSNESS [None]
  - MALAISE [None]
  - ORAL INTAKE REDUCED [None]
  - TRACHEOSTOMY [None]
